FAERS Safety Report 21542923 (Version 2)
Quarter: 2022Q4

REPORT INFORMATION
  Report Type: Report from Study
  Country: GB (occurrence: GB)
  Receive Date: 20221102
  Receipt Date: 20221203
  Transmission Date: 20230113
  Serious: Yes (Other)
  Sender: FDA-Public Use
  Company Number: GB-002147023-NVSC2022GB185528

PATIENT
  Age: 50 Year
  Sex: Male

DRUGS (1)
  1. GILENYA [Suspect]
     Active Substance: FINGOLIMOD HYDROCHLORIDE
     Indication: Multiple sclerosis
     Dosage: UNK
     Route: 065
     Dates: start: 20210920

REACTIONS (4)
  - Optic neuritis [Recovered/Resolved]
  - Hypertension [Not Recovered/Not Resolved]
  - Urinary tract infection [Not Recovered/Not Resolved]
  - Penile wart [Not Recovered/Not Resolved]

NARRATIVE: CASE EVENT DATE: 20220101
